FAERS Safety Report 7538765-2 (Version None)
Quarter: 2011Q2

REPORT INFORMATION
  Report Type: 
  Country: None (occurrence: None)
  Receive Date: 20110610
  Receipt Date: 20091130
  Transmission Date: 20111010
  Serious: Yes (Hospitalization, Other)
  Sender: FDA-Public Use
  Company Number: US-BAYER-200941225NA

PATIENT
  Age: 61 Year
  Sex: Male
  Weight: 101.59 kg

DRUGS (14)
  1. HEPARIN [Concomitant]
     Dosage: 5000 UNITS PRIME
     Dates: start: 20060428, end: 20060428
  2. INSULIN [Concomitant]
     Dosage: 10 UNITS BOLUS THEN 2 UNITS PER HOUR
     Route: 042
     Dates: start: 20060428
  3. TRASYLOL [Suspect]
     Indication: CORONARY ARTERY BYPASS
     Dosage: 200 CC PRIME THEN 50 CC PER HOUR
     Route: 042
     Dates: start: 20060428, end: 20060428
  4. LIPITOR [Concomitant]
     Dosage: 40 MG
     Route: 048
  5. TOPROL-XL [Concomitant]
     Dosage: 100 MG
     Route: 048
  6. GLIPIZIDE [Concomitant]
     Dosage: 10 MG
     Route: 048
  7. HEPARIN [Concomitant]
     Dosage: 4000 UNITS IRRIGATION
     Dates: start: 20060428, end: 20060428
  8. CONTRAST MEDIA [Concomitant]
     Dosage: UNK
     Dates: start: 20060425
  9. CAPTOPRIL [Concomitant]
     Dosage: 12.5 MG THREE TIMES A DAY
     Route: 048
  10. ACETYLSALICYLIC ACID SRT [Concomitant]
     Dosage: 81 MG DAILY
     Route: 048
  11. PLAVIX [Concomitant]
     Dosage: 75 MG
     Route: 048
  12. NITROGLYCERIN [Concomitant]
     Dosage: UNK
     Route: 042
     Dates: start: 20060428, end: 20060428
  13. TRASYLOL [Suspect]
     Dosage: UNK
     Route: 042
     Dates: start: 19980303
  14. MINOXIDIL [Concomitant]
     Dosage: 25 MG
     Route: 048

REACTIONS (12)
  - UNEVALUABLE EVENT [None]
  - FEAR [None]
  - EMOTIONAL DISTRESS [None]
  - INJURY [None]
  - RENAL FAILURE [None]
  - RENAL IMPAIRMENT [None]
  - STRESS [None]
  - RENAL INJURY [None]
  - ANXIETY [None]
  - DEPRESSION [None]
  - ANHEDONIA [None]
  - PAIN [None]
